FAERS Safety Report 24144721 (Version 2)
Quarter: 2024Q4

REPORT INFORMATION
  Report Type: Report from Study
  Country: US (occurrence: US)
  Receive Date: 20240728
  Receipt Date: 20241104
  Transmission Date: 20250115
  Serious: Yes (Hospitalization, Other)
  Sender: ABBVIE
  Company Number: US-ABBVIE-5851551

PATIENT
  Age: 60 Year
  Sex: Female

DRUGS (1)
  1. RINVOQ [Suspect]
     Active Substance: UPADACITINIB
     Indication: Rheumatoid arthritis
     Route: 048
     Dates: start: 202401

REACTIONS (3)
  - Spinal operation [Recovered/Resolved]
  - Neoplasm malignant [Unknown]
  - Spinal operation [Unknown]

NARRATIVE: CASE EVENT DATE: 20240101
